FAERS Safety Report 12565331 (Version 1)
Quarter: 2016Q3

REPORT INFORMATION
  Report Type: Report from Study
  Country: US (occurrence: US)
  Receive Date: 20160718
  Receipt Date: 20160718
  Transmission Date: 20161109
  Serious: Yes (Other)
  Sender: FDA-Public Use
  Company Number: US-ROCHE-1795884

PATIENT
  Age: 78 Year
  Sex: Female
  Weight: 45.3 kg

DRUGS (8)
  1. ERLOTINIB [Suspect]
     Active Substance: ERLOTINIB
     Route: 048
     Dates: start: 20110811
  2. VISMODEGIB [Suspect]
     Active Substance: VISMODEGIB
     Route: 048
     Dates: start: 20110811
  3. ERLOTINIB [Suspect]
     Active Substance: ERLOTINIB
     Indication: PANCREATIC CARCINOMA
     Dosage: ON DAYS 1-28?1125 MG
     Route: 048
     Dates: start: 20110616
  4. ERLOTINIB [Suspect]
     Active Substance: ERLOTINIB
     Route: 048
     Dates: start: 20110714
  5. ERLOTINIB [Suspect]
     Active Substance: ERLOTINIB
     Dosage: LAST TREATMENT DATE 29/SEP/2011
     Route: 048
     Dates: start: 20110915
  6. VISMODEGIB [Suspect]
     Active Substance: VISMODEGIB
     Indication: PANCREATIC CARCINOMA
     Dosage: 4200 MG
     Route: 048
     Dates: start: 20110616
  7. VISMODEGIB [Suspect]
     Active Substance: VISMODEGIB
     Route: 048
     Dates: start: 20110714
  8. VISMODEGIB [Suspect]
     Active Substance: VISMODEGIB
     Dosage: LAST TREATMENT DATE 29/SEP/2011
     Route: 048
     Dates: start: 20110915

REACTIONS (3)
  - Anaemia [Unknown]
  - Weight decreased [Unknown]
  - Fatigue [Unknown]
